FAERS Safety Report 25572595 (Version 1)
Quarter: 2025Q3

REPORT INFORMATION
  Report Type: Spontaneous
  Country: VN (occurrence: VN)
  Receive Date: 20250717
  Receipt Date: 20250717
  Transmission Date: 20251020
  Serious: Yes (Other)
  Sender: ROCHE
  Company Number: VN-CHEPLA-2025008558

PATIENT
  Sex: Male

DRUGS (12)
  1. GANCICLOVIR [Suspect]
     Active Substance: GANCICLOVIR
     Indication: Cytomegalovirus infection
     Route: 042
  2. RITUXIMAB [Suspect]
     Active Substance: RITUXIMAB
     Indication: Product used for unknown indication
     Route: 065
  3. MYCOPHENOLATE MOFETIL [Suspect]
     Active Substance: MYCOPHENOLATE MOFETIL
     Indication: Prophylaxis against graft versus host disease
     Route: 065
  4. SULFAMETHOXAZOLE\TRIMETHOPRIM [Suspect]
     Active Substance: SULFAMETHOXAZOLE\TRIMETHOPRIM
     Indication: Pneumocystis jirovecii infection
     Route: 065
  5. TACROLIMUS [Suspect]
     Active Substance: TACROLIMUS
     Indication: Product used for unknown indication
     Route: 065
  6. CYCLOPHOSPHAMIDE [Suspect]
     Active Substance: CYCLOPHOSPHAMIDE
     Indication: Product used for unknown indication
     Dosage: 50 MG/KG/DAY FOR 2 DAYS (DAYS +3 AND +4)
     Route: 065
  7. MELPHALAN [Suspect]
     Active Substance: MELPHALAN
     Indication: Product used for unknown indication
     Dosage: 70 MG/M2 EVERY 12 HOURS FOR 1 DAY
     Route: 065
  8. FLUDARABINE [Suspect]
     Active Substance: FLUDARABINE PHOSPHATE
     Indication: Bone marrow conditioning regimen
     Dosage: 40 MG/M2/DAY FOR 4 DAYS
     Route: 042
  9. FLUDARABINE [Suspect]
     Active Substance: FLUDARABINE PHOSPHATE
     Dosage: 30 MG/M2/DAY FOR 5 DAYS
     Route: 042
  10. BUSULFAN [Suspect]
     Active Substance: BUSULFAN
     Indication: Bone marrow conditioning regimen
     Dosage: 1.2 MG/KG EVERY 6 HOURS FOR 4 DAYS
     Route: 042
  11. CYCLOSPORINE [Suspect]
     Active Substance: CYCLOSPORINE
     Indication: Prophylaxis against graft versus host disease
     Route: 065
  12. FOSCARNET [Suspect]
     Active Substance: FOSCARNET
     Indication: Product used for unknown indication
     Route: 065

REACTIONS (8)
  - Cytomegalovirus infection reactivation [Recovering/Resolving]
  - Pancytopenia [Recovered/Resolved]
  - Transplant failure [Recovered/Resolved]
  - Epstein-Barr virus infection reactivation [Recovered/Resolved]
  - Febrile neutropenia [Recovered/Resolved]
  - Cystitis haemorrhagic [Recovered/Resolved]
  - Skin infection [Unknown]
  - Off label use [Unknown]
